FAERS Safety Report 16945061 (Version 1)
Quarter: 2019Q4

REPORT INFORMATION
  Report Type: Spontaneous
  Country: TW (occurrence: TW)
  Receive Date: 20191022
  Receipt Date: 20191022
  Transmission Date: 20200122
  Serious: Yes (Death, Other)
  Sender: FDA-Public Use
  Company Number: TW-PFIZER INC-2019435350

PATIENT
  Age: 83 Year
  Sex: Female

DRUGS (1)
  1. TYGACIL [Suspect]
     Active Substance: TIGECYCLINE
     Dosage: 100 MG, 2X/DAY
     Route: 042
     Dates: start: 20190930, end: 20191004

REACTIONS (5)
  - Stevens-Johnson syndrome [Recovered/Resolved]
  - Product use issue [Unknown]
  - Sepsis [Fatal]
  - Fungaemia [Fatal]
  - Off label use [Unknown]

NARRATIVE: CASE EVENT DATE: 20191001
